FAERS Safety Report 8119970-3 (Version None)
Quarter: 2012Q1

REPORT INFORMATION
  Report Type: 
  Country: None (occurrence: None)
  Receive Date: 20120206
  Receipt Date: 20120206
  Transmission Date: 20120608
  Serious: Yes (Other)
  Sender: FDA-Public Use
  Company Number: None

PATIENT
  Sex: Female
  Weight: 49.8957 kg

DRUGS (1)
  1. CITRACAL CALCIUM CITRATE-D 3 MAXIMUM STRENGTH [Suspect]
     Indication: OSTEOPENIA
     Dosage: 2 CAPLETS TWICE DAILY
     Dates: start: 19960101, end: 20111201

REACTIONS (4)
  - NAUSEA [None]
  - CONSTIPATION [None]
  - HYPOAESTHESIA [None]
  - ABDOMINAL PAIN [None]
